FAERS Safety Report 9132211 (Version 1)
Quarter: 2013Q1

REPORT INFORMATION
  Report Type: Spontaneous
  Country: TW (occurrence: TW)
  Receive Date: 20130301
  Receipt Date: 20130301
  Transmission Date: 20140127
  Serious: Yes (Hospitalization)
  Sender: FDA-Public Use
  Company Number: TW-ABBOTT-12P-153-1027510-00

PATIENT
  Age: 58 Year
  Sex: Male
  Weight: 50 kg

DRUGS (1)
  1. HUMIRA [Suspect]
     Indication: CROHN^S DISEASE
     Route: 058
     Dates: start: 20120601, end: 20121214

REACTIONS (5)
  - Wound complication [Recovering/Resolving]
  - Wound complication [Unknown]
  - Incision site abscess [Unknown]
  - Abscess rupture [Unknown]
  - Abdominal abscess [Unknown]
